FAERS Safety Report 5601015-8 (Version None)
Quarter: 2008Q1

REPORT INFORMATION
  Report Type: 
  Country: None (occurrence: None)
  Receive Date: 20080118
  Receipt Date: 20080104
  Transmission Date: 20080703
  Serious: Yes (Death)
  Sender: FDA-Public Use
  Company Number: 2008000908

PATIENT
  Age: 50 Year
  Sex: Male

DRUGS (3)
  1. ACETAMINOPHEN [Suspect]
     Dosage: ORAL
     Route: 048
  2. DEXTROMETHORPHAN HYDROBROMIDE [Suspect]
     Dosage: ORAL
     Route: 048
  3. ACETAMINOPHEN AND OXYCODONE HCL [Suspect]
     Dosage: ORAL
     Route: 048

REACTIONS (1)
  - DRUG TOXICITY [None]
